FAERS Safety Report 17616894 (Version 1)
Quarter: 2020Q2

REPORT INFORMATION
  Report Type: Spontaneous
  Country: US (occurrence: US)
  Receive Date: 20200402
  Receipt Date: 20200402
  Transmission Date: 20200713
  Serious: No
  Sender: FDA-Public Use
  Company Number: None

PATIENT
  Age: 74 Year
  Sex: Male
  Weight: 86.4 kg

DRUGS (15)
  1. CETRIZINE 10 MG, ORAL [Concomitant]
  2. METFORMIN 500 MG, ORAL [Concomitant]
  3. FINASTERIDE, 5 MG, ORAL [Concomitant]
  4. LOSARTAN 100 MG, ORAL [Concomitant]
  5. PENTOXIFYLLINE 400 MG, ORAL TWICE A DAY [Concomitant]
  6. MEKTOVI [Suspect]
     Active Substance: BINIMETINIB
     Indication: SKIN CANCER
     Route: 048
     Dates: start: 20200210
  7. VITAMIN D 50 MCG, ORAL [Concomitant]
  8. KLOR CON M10, 10 MEQ, ROAL EVERY OTHER DAY [Concomitant]
  9. REVATIO 20MG, ORAL [Concomitant]
  10. AMLODIPINE 10 MG, ORAL [Concomitant]
  11. VITAMIN B 12 1000 MCG, ORAL [Concomitant]
  12. LORAZEPAM 1 MG, ORAL [Concomitant]
     Dates: end: 20200304
  13. BRAFTOVI [Suspect]
     Active Substance: ENCORAFENIB
     Indication: SKIN CANCER
     Route: 048
     Dates: start: 20200210
  14. ATORVASTATIN 20MG, ORAL [Concomitant]
  15. HYDROCHLOROTHIAZIDE 12.5 MG, ORAL [Concomitant]

REACTIONS (3)
  - Gait disturbance [None]
  - Blood creatine phosphokinase increased [None]
  - Blood creatinine increased [None]

NARRATIVE: CASE EVENT DATE: 20200402
